FAERS Safety Report 12395676 (Version 1)
Quarter: 2016Q2

REPORT INFORMATION
  Report Type: Spontaneous
  Country: IT (occurrence: IT)
  Receive Date: 20160523
  Receipt Date: 20160523
  Transmission Date: 20160815
  Serious: Yes (Other)
  Sender: FDA-Public Use
  Company Number: PHHY2016IT067892

PATIENT
  Age: 55 Year
  Sex: Female

DRUGS (2)
  1. CARBOCAINA [Suspect]
     Active Substance: MEPIVACAINE HYDROCHLORIDE
     Indication: PRODUCT USED FOR UNKNOWN INDICATION
     Dosage: 1 DF, PRN
     Route: 004
     Dates: start: 20151201, end: 20151201
  2. AMOXICILLIN. [Suspect]
     Active Substance: AMOXICILLIN
     Indication: TOOTH INFECTION
     Dosage: 2000 MG, QD
     Route: 048
     Dates: start: 20151201, end: 20151201

REACTIONS (3)
  - Bronchospasm [Recovering/Resolving]
  - Generalised erythema [Recovering/Resolving]
  - Pruritus [Recovering/Resolving]

NARRATIVE: CASE EVENT DATE: 20151201
